FAERS Safety Report 23315542 (Version 1)
Quarter: 2023Q4

REPORT INFORMATION
  Report Type: Spontaneous
  Country: US (occurrence: US)
  Receive Date: 20231219
  Receipt Date: 20231219
  Transmission Date: 20240109
  Serious: Yes (Hospitalization)
  Sender: FDA-Public Use
  Company Number: US-ORG100016242-2023000245

PATIENT
  Age: 24 Year
  Sex: Male
  Weight: 115 kg

DRUGS (1)
  1. EXPAREL [Suspect]
     Active Substance: BUPIVACAINE
     Indication: Surgery
     Route: 065
     Dates: start: 20230822, end: 20230822

REACTIONS (2)
  - Seizure [Unknown]
  - Off label use [Recovered/Resolved]

NARRATIVE: CASE EVENT DATE: 20230822
